FAERS Safety Report 23665094 (Version 4)
Quarter: 2024Q2

REPORT INFORMATION
  Report Type: Spontaneous
  Country: US (occurrence: US)
  Receive Date: 20240322
  Receipt Date: 20240513
  Transmission Date: 20240716
  Serious: No
  Sender: FDA-Public Use
  Company Number: US-PFIZER INC-PV202400034217

PATIENT
  Age: 69 Year
  Sex: Male
  Weight: 102.04 kg

DRUGS (6)
  1. BRAFTOVI [Suspect]
     Active Substance: ENCORAFENIB
     Indication: Non-small cell lung cancer
     Dosage: 450 MG, DAILY
     Route: 048
  2. BRAFTOVI [Suspect]
     Active Substance: ENCORAFENIB
     Indication: BRAF gene mutation
     Dosage: TAKING 6 BRAFTOVI (75 MG)
     Dates: start: 20240313
  3. BRAFTOVI [Suspect]
     Active Substance: ENCORAFENIB
     Dosage: 300 MG (4 BRAF)
     Dates: start: 20240315
  4. BRAFTOVI [Suspect]
     Active Substance: ENCORAFENIB
     Dosage: 3 PILLS DAILY
  5. MEKTOVI [Suspect]
     Active Substance: BINIMETINIB
     Indication: Non-small cell lung cancer
     Dosage: APPROXIMATELY 12 HOURS APART. TAKE WITH OR WITHOUT FOOD
     Route: 048
     Dates: start: 20240313, end: 20240313
  6. MEKTOVI [Suspect]
     Active Substance: BINIMETINIB
     Indication: BRAF gene mutation
     Dosage: 30 MG, 2X/DAY (2 PILLS)
     Dates: start: 20240315, end: 20240315

REACTIONS (5)
  - Visual impairment [Unknown]
  - Extrasystoles [Unknown]
  - Burning sensation [Unknown]
  - Rash [Unknown]
  - Vision blurred [Recovered/Resolved]

NARRATIVE: CASE EVENT DATE: 20240313
